FAERS Safety Report 6373757-0 (Version None)
Quarter: 2009Q3

REPORT INFORMATION
  Report Type: 
  Country: None (occurrence: None)
  Receive Date: 20090924
  Receipt Date: 20090430
  Transmission Date: 20100115
  Serious: Yes (Life-Threatening)
  Sender: FDA-Public Use
  Company Number: US-ASTRAZENECA-2009UW10748

PATIENT
  Age: 28 Year
  Sex: Female

DRUGS (4)
  1. SEROQUEL XR [Suspect]
     Indication: SCHIZOPHRENIA
     Route: 048
  2. SEROQUEL XR [Suspect]
     Route: 048
  3. CELEXA [Concomitant]
     Dates: end: 20090401
  4. LEXAPRO [Concomitant]
     Dates: start: 20090401

REACTIONS (5)
  - DRUG INEFFECTIVE [None]
  - EMOTIONAL DISTRESS [None]
  - HYPERSOMNIA [None]
  - ILL-DEFINED DISORDER [None]
  - SUICIDE ATTEMPT [None]
